FAERS Safety Report 7515938-6 (Version None)
Quarter: 2011Q2

REPORT INFORMATION
  Report Type: 
  Country: None (occurrence: None)
  Receive Date: 20110526
  Receipt Date: 20110526
  Transmission Date: 20111010
  Serious: Yes (Other)
  Sender: FDA-Public Use
  Company Number: None

PATIENT
  Sex: Male
  Weight: 96.6162 kg

DRUGS (10)
  1. OXYCONTIN [Concomitant]
  2. RIFADIN [Concomitant]
  3. DAPTOMYCIN [Suspect]
     Indication: ARTHRITIS BACTERIAL
     Dosage: 580MG IV EVERY 24 HOURS
     Route: 042
     Dates: start: 20110408, end: 20110514
  4. LOVENOX [Concomitant]
  5. PERCOCET [Concomitant]
  6. NEURONTIN [Concomitant]
  7. CYMBALTA [Concomitant]
  8. LOTREL [Concomitant]
  9. COMPAZINE [Concomitant]
  10. MOTRIN [Concomitant]

REACTIONS (1)
  - ANAPHYLACTIC REACTION [None]
